FAERS Safety Report 25702303 (Version 1)
Quarter: 2025Q3

REPORT INFORMATION
  Report Type: Report from Study
  Country: CA (occurrence: CA)
  Receive Date: 20250819
  Receipt Date: 20250819
  Transmission Date: 20251020
  Serious: Yes (Other)
  Sender: KYOWA
  Company Number: CA-KYOWAKIRIN-2021BKK008964

PATIENT

DRUGS (4)
  1. BUROSUMAB [Suspect]
     Active Substance: BUROSUMAB
     Indication: Hereditary hypophosphataemic rickets
     Dosage: 10 MG, Q 2 WEEKS
     Route: 058
     Dates: start: 20191018, end: 20200626
  2. BUROSUMAB [Suspect]
     Active Substance: BUROSUMAB
     Dosage: 20 MG, Q 2 WEEKS
     Route: 058
     Dates: start: 20200710, end: 20210205
  3. BUROSUMAB [Suspect]
     Active Substance: BUROSUMAB
     Dosage: 25 MG, Q 2 WEEKS
     Route: 058
     Dates: start: 20210222
  4. VITAMIN D NOS [Suspect]
     Active Substance: CHOLECALCIFEROL\ERGOCALCIFEROL
     Indication: Product used for unknown indication
     Route: 048

REACTIONS (6)
  - Intussusception [Recovered/Resolved]
  - Nephrocalcinosis [Unknown]
  - Tooth loss [Unknown]
  - Tooth abscess [Unknown]
  - Pain in extremity [Unknown]
  - Contraindicated product administered [Not Recovered/Not Resolved]
